FAERS Safety Report 11128262 (Version 1)
Quarter: 2015Q2

REPORT INFORMATION
  Report Type: Spontaneous
  Country: US (occurrence: None)
  Receive Date: 20150520
  Receipt Date: 20150520
  Transmission Date: 20150821
  Serious: Yes (Hospitalization)
  Sender: FDA-Public Use
  Company Number: None

PATIENT
  Age: 62 Year
  Sex: Male
  Weight: 100 kg

DRUGS (11)
  1. SSI INSULIN ASPART [Concomitant]
  2. FUROSEMIDE. [Concomitant]
     Active Substance: FUROSEMIDE
  3. GABAPENTIN. [Concomitant]
     Active Substance: GABAPENTIN
  4. MICARDIS HCT [Concomitant]
     Active Substance: HYDROCHLOROTHIAZIDE\TELMISARTAN
  5. INSULIN GLARGINE [Concomitant]
     Active Substance: INSULIN GLARGINE
  6. ESOMEPROZOLE [Concomitant]
  7. CARVEDILOL. [Concomitant]
     Active Substance: CARVEDILOL
  8. ASA [Concomitant]
     Active Substance: ASPIRIN
  9. JANUVIA [Concomitant]
     Active Substance: SITAGLIPTIN PHOSPHATE
  10. ATORVASTATIN [Concomitant]
     Active Substance: ATORVASTATIN
  11. WARFARIN 3MG CADILA HEALTHCARE [Suspect]
     Active Substance: WARFARIN
     Indication: ATRIAL FIBRILLATION
     Route: 048

REACTIONS (4)
  - Gastrointestinal haemorrhage [None]
  - Coagulopathy [None]
  - Haematocrit decreased [None]
  - Haemoglobin decreased [None]

NARRATIVE: CASE EVENT DATE: 20150203
